FAERS Safety Report 12897089 (Version 1)
Quarter: 2016Q4

REPORT INFORMATION
  Report Type: Spontaneous
  Country: AU (occurrence: AU)
  Receive Date: 20161031
  Receipt Date: 20161031
  Transmission Date: 20170207
  Serious: Yes (Other)
  Sender: FDA-Public Use
  Company Number: AU-MYLANLABS-2016M1046621

PATIENT

DRUGS (1)
  1. CIPROFLOXACIN. [Suspect]
     Active Substance: CIPROFLOXACIN
     Indication: SALMONELLOSIS
     Route: 048

REACTIONS (2)
  - Pathogen resistance [Recovered/Resolved]
  - Septic shock [Recovered/Resolved]
